FAERS Safety Report 8329581-2 (Version None)
Quarter: 2012Q2

REPORT INFORMATION
  Report Type: 
  Country: None (occurrence: None)
  Receive Date: 20120502
  Receipt Date: 20120420
  Transmission Date: 20120825
  Serious: Yes (Hospitalization)
  Sender: FDA-Public Use
  Company Number: ES-ROCHE-1059378

PATIENT
  Sex: Male
  Weight: 69 kg

DRUGS (7)
  1. OXALIPLATIN [Suspect]
     Indication: COLON CANCER
     Dosage: LAST DOSE PRIOR TO SAE: 22/MAR/2012
     Route: 042
     Dates: start: 20120209
  2. XELODA [Suspect]
     Dosage: LAST DOSE PRIOR TO SAE: 05/APR/2012
     Route: 048
     Dates: start: 20120322
  3. AVASTIN [Suspect]
     Indication: COLON CANCER
     Dosage: LAST DOSE PRIOR TO SAE: 22/MAR/2012
     Route: 042
     Dates: start: 20120209
  4. HYDROSALURIC [Concomitant]
  5. LISINOPRIL [Concomitant]
  6. XELODA [Suspect]
     Indication: COLON CANCER
     Route: 048
     Dates: start: 20120209
  7. ASPIRIN [Concomitant]

REACTIONS (1)
  - ACUTE CORONARY SYNDROME [None]
